FAERS Safety Report 12498892 (Version 1)
Quarter: 2016Q2

REPORT INFORMATION
  Report Type: Spontaneous
  Country: US (occurrence: None)
  Receive Date: 20160624
  Receipt Date: 20160624
  Transmission Date: 20160815
  Serious: No
  Sender: FDA-Public Use
  Company Number: None

PATIENT
  Age: 55 Year
  Sex: Female
  Weight: 83.92 kg

DRUGS (27)
  1. PROBIOTIC ACIDOPHILUS [Concomitant]
     Active Substance: LACTOBACILLUS ACIDOPHILUS
  2. HELICHRYSUM [Concomitant]
  3. BUPROPION. [Concomitant]
     Active Substance: BUPROPION
  4. L-LYSINE [Concomitant]
     Active Substance: LYSINE
  5. JUNIPER BERRY [Concomitant]
  6. FRANKINCENSE [Concomitant]
  7. IBUPROFEN. [Concomitant]
     Active Substance: IBUPROFEN
  8. FISH OIL [Concomitant]
     Active Substance: FISH OIL
  9. MARJORAM [Concomitant]
  10. LEVOFLOXACIN 500 MG TABLET, 500 MG MACLEODS PHARMA [Suspect]
     Active Substance: LEVOFLOXACIN
     Indication: URINARY TRACT INFECTION
     Route: 048
     Dates: start: 20160318, end: 20160326
  11. ZINC [Concomitant]
     Active Substance: ZINC\ZINC CHLORIDE
  12. CYPRESS [Concomitant]
  13. LEMONGRASS [Concomitant]
  14. LAVENDER [Concomitant]
  15. CLOVE BUD [Concomitant]
  16. CINNAMON. [Concomitant]
     Active Substance: CINNAMON
  17. CPAP MACHINE [Concomitant]
  18. ATENOLOL. [Concomitant]
     Active Substance: ATENOLOL
  19. VITAMIN B12 [Concomitant]
     Active Substance: CYANOCOBALAMIN
  20. MELATONIN [Concomitant]
     Active Substance: MELATONIN
  21. MAGNESIUM [Concomitant]
     Active Substance: MAGNESIUM
  22. YLANG YLANG [Concomitant]
  23. MELALEUCA [Concomitant]
     Active Substance: MELALEUCA QUINQUENERVIA POLLEN
  24. CRANBERRY EXTRACT [Concomitant]
     Active Substance: CRANBERRY JUICE
  25. VITAMIN D3 [Concomitant]
     Active Substance: CHOLECALCIFEROL
  26. TOPICAL APPLICATION OF OREGANO [Concomitant]
  27. ESSENTIAL OILS - LEMON IN WATER [Concomitant]

REACTIONS (17)
  - Back pain [None]
  - Swelling [None]
  - Impaired work ability [None]
  - Chest pain [None]
  - Joint stiffness [None]
  - Musculoskeletal pain [None]
  - Feeling abnormal [None]
  - Arthropathy [None]
  - Hot flush [None]
  - Peripheral swelling [None]
  - Tendon disorder [None]
  - Paraesthesia [None]
  - Abdominal pain upper [None]
  - Hypoaesthesia [None]
  - Skin discolouration [None]
  - Formication [None]
  - Condition aggravated [None]

NARRATIVE: CASE EVENT DATE: 20160318
